FAERS Safety Report 7920708-0 (Version None)
Quarter: 2011Q4

REPORT INFORMATION
  Report Type: 
  Country: None (occurrence: None)
  Receive Date: 20111117
  Receipt Date: 20111108
  Transmission Date: 20120403
  Serious: Yes (Other)
  Sender: FDA-Public Use
  Company Number: CA-JNJFOC-20111104578

PATIENT
  Sex: Female
  Weight: 48.8 kg

DRUGS (5)
  1. REMICADE [Suspect]
     Indication: CROHN'S DISEASE
     Route: 042
     Dates: start: 20110210
  2. FERROMAX [Concomitant]
     Route: 065
  3. REMICADE [Suspect]
     Route: 042
     Dates: start: 20110909
  4. VITAMIN B-12 [Concomitant]
     Dosage: SHOTS
     Route: 065
  5. PREDNISONE TAB [Concomitant]
     Route: 065

REACTIONS (5)
  - RASH [None]
  - ARTHRALGIA [None]
  - PAIN [None]
  - SKIN MASS [None]
  - NAUSEA [None]
